FAERS Safety Report 10430392 (Version 1)
Quarter: 2014Q3

REPORT INFORMATION
  Report Type: Spontaneous
  Country: CH (occurrence: CH)
  Receive Date: 20140904
  Receipt Date: 20140904
  Transmission Date: 20150326
  Serious: Yes (Hospitalization)
  Sender: FDA-Public Use
  Company Number: US-ASTRAZENECA-2014SE65717

PATIENT
  Age: 75 Year
  Sex: Female
  Weight: 57 kg

DRUGS (4)
  1. ASPIRIN CARDIO [Concomitant]
     Active Substance: ASPIRIN
  2. DEANXIT [Concomitant]
     Active Substance: FLUPENTIXOL DIHYDROCHLORIDE\MELITRACEN HYDROCHLORIDE
     Dosage: 10/0.5 MG, 1-2 TIMES DAILY
  3. NEBILET [Concomitant]
     Active Substance: NEBIVOLOL
  4. CANDESARTAN PLUS ? 1 A PHARMA [Suspect]
     Active Substance: CANDESARTAN CILEXETIL\HYDROCHLOROTHIAZIDE
     Indication: HYPERTENSION
     Dosage: 8/12.5 MG
     Route: 048

REACTIONS (2)
  - Blood sodium decreased [Recovering/Resolving]
  - Hypoosmolar state [Recovering/Resolving]

NARRATIVE: CASE EVENT DATE: 20140511
